FAERS Safety Report 7998992-7 (Version None)
Quarter: 2011Q4

REPORT INFORMATION
  Report Type: 
  Country: None (occurrence: None)
  Receive Date: 20111221
  Receipt Date: 20111215
  Transmission Date: 20120403
  Serious: Yes (Death, Hospitalization)
  Sender: FDA-Public Use
  Company Number: US-CELGENEUS-163-21880-11120856

PATIENT
  Sex: Male

DRUGS (11)
  1. COLCHICINE [Concomitant]
     Route: 065
  2. VENTOLIN HFA [Concomitant]
     Route: 065
  3. ASPIRIN [Concomitant]
     Route: 065
  4. DONEPEZIL HCL [Concomitant]
     Route: 065
  5. LISINOPRIL [Concomitant]
     Route: 065
  6. FUROSEMIDE [Concomitant]
     Route: 065
  7. REVLIMID [Suspect]
     Dosage: 5 MILLIGRAM
     Route: 048
     Dates: start: 20111114
  8. POTASSIUM [Concomitant]
     Route: 065
  9. CHLORIDE CR [Concomitant]
     Route: 065
  10. FAMOTIDINE [Concomitant]
     Route: 065
  11. CENTRUM SILVER [Concomitant]
     Route: 065

REACTIONS (3)
  - DEATH [None]
  - DISORIENTATION [None]
  - OEDEMA PERIPHERAL [None]
